FAERS Safety Report 9920659 (Version 1)
Quarter: 2014Q1

REPORT INFORMATION
  Report Type: Spontaneous
  Country: US (occurrence: US)
  Receive Date: 20140224
  Receipt Date: 20140224
  Transmission Date: 20141002
  Serious: No
  Sender: FDA-Public Use
  Company Number: US-NOVEN-14US008629

PATIENT
  Sex: Female

DRUGS (4)
  1. MINIVELLE [Suspect]
     Indication: PAIN
     Dosage: 0.1 MG/DAY, TWICE WEEKLY
     Route: 062
  2. MINIVELLE [Suspect]
     Indication: DYSMENORRHOEA
     Dosage: 0.075 MG, 2/WK
     Route: 062
  3. MINIVELLE [Suspect]
     Dosage: 0.05 MG, 2/WK
     Route: 062
  4. LEVONORGESTREL [Concomitant]
     Indication: DYSMENORRHOEA
     Dosage: UNK
     Route: 015

REACTIONS (3)
  - Off label use [Not Recovered/Not Resolved]
  - Wrong technique in drug usage process [Not Recovered/Not Resolved]
  - Product quality issue [Not Recovered/Not Resolved]
